FAERS Safety Report 9716660 (Version 1)
Quarter: 2013Q4

REPORT INFORMATION
  Report Type: Spontaneous
  Country: US (occurrence: US)
  Receive Date: 20131127
  Receipt Date: 20131127
  Transmission Date: 20140711
  Serious: No
  Sender: FDA-Public Use
  Company Number: US-PFIZER INC-2013338501

PATIENT
  Age: 54 Year
  Sex: Female
  Weight: 118 kg

DRUGS (5)
  1. NEURONTIN [Suspect]
     Indication: BACK PAIN
     Dosage: 1800 MG, 1X/DAY
     Dates: start: 20130826
  2. NEURONTIN [Suspect]
     Indication: PAIN IN EXTREMITY
     Dosage: 2400 MG, 1X/DAY
     Dates: start: 20130925
  3. TYLENOL [Concomitant]
     Indication: PAIN
     Dosage: 1000 MG, 2X/DAY
  4. IBUPROFEN [Concomitant]
     Indication: PAIN
     Dosage: 1600 MG, 1X/DAY
  5. BABY ASPIRIN [Concomitant]
     Dosage: UNK

REACTIONS (3)
  - Off label use [Unknown]
  - Drug ineffective for unapproved indication [Unknown]
  - Therapeutic response unexpected [Unknown]
